FAERS Safety Report 9652062 (Version 1)
Quarter: 2013Q4

REPORT INFORMATION
  Report Type: Spontaneous
  Country: GR (occurrence: None)
  Receive Date: 20131025
  Receipt Date: 20131025
  Transmission Date: 20140711
  Serious: Yes (Hospitalization)
  Sender: FDA-Public Use
  Company Number: 151879

PATIENT
  Age: 80 Year
  Sex: Female

DRUGS (2)
  1. ACETAZOLAMIDE [Suspect]
     Indication: INTRAOCULAR PRESSURE TEST
     Dosage: HALF A TABLET
  2. ACETAZOLAMIDE [Suspect]
     Indication: PREOPERATIVE CARE
     Dosage: HALF A TABLET

REACTIONS (3)
  - Anaphylactic shock [None]
  - Pulmonary oedema [None]
  - Acute respiratory failure [None]
